FAERS Safety Report 20356785 (Version 2)
Quarter: 2022Q1

REPORT INFORMATION
  Report Type: Spontaneous
  Country: US (occurrence: US)
  Receive Date: 20220120
  Receipt Date: 20220207
  Transmission Date: 20220424
  Serious: Yes (Hospitalization)
  Sender: FDA-Public Use
  Company Number: US-TEVA-2022-US-1999107

PATIENT
  Age: 7 Year
  Sex: Male

DRUGS (4)
  1. AMANTADINE [Suspect]
     Active Substance: AMANTADINE
     Indication: Depressed level of consciousness
     Route: 065
  2. METHYLPHENIDATE [Suspect]
     Active Substance: METHYLPHENIDATE
     Indication: Depressed level of consciousness
     Route: 065
  3. BROMOCRIPTINE [Suspect]
     Active Substance: BROMOCRIPTINE
     Indication: Depressed level of consciousness
     Dosage: RECEIVED HIGH DOSE BROMOCRIPTINE [EXACT DOSE NOT STATED]
     Route: 065
  4. AMPHETAMINE\DEXTROAMPHETAMINE [Concomitant]
     Active Substance: AMPHETAMINE\DEXTROAMPHETAMINE
     Indication: Depressed level of consciousness
     Dosage: THE DOSE WAS WAS TITRATED TO 10MG, WHICH WAS RECEIVED AT 8 AM AND NOON
     Route: 065

REACTIONS (6)
  - Muscle twitching [Unknown]
  - Myoclonus [Unknown]
  - Heart rate increased [Unknown]
  - Blood pressure increased [Unknown]
  - Somnolence [Unknown]
  - Nausea [Unknown]
